FAERS Safety Report 9137749 (Version 1)
Quarter: 2013Q1

REPORT INFORMATION
  Report Type: Other
  Country: US (occurrence: US)
  Receive Date: 20130304
  Receipt Date: 20130304
  Transmission Date: 20140127
  Serious: No
  Sender: FDA-Public Use
  Company Number: US-ENDO PHARMACEUTICALS INC.-PERC20110006

PATIENT
  Sex: Male
  Weight: 84.9 kg

DRUGS (4)
  1. PERCOCET [Suspect]
     Indication: PRODUCT USED FOR UNKNOWN INDICATION
     Dosage: UNK
     Route: 048
     Dates: start: 201009
  2. HUMIRA [Suspect]
     Indication: CROHN^S DISEASE
     Dosage: 40 MG
     Dates: start: 20100729
  3. ASACOL EC [Concomitant]
     Indication: CROHN^S DISEASE
  4. PREDNISONE [Concomitant]
     Indication: CROHN^S DISEASE

REACTIONS (2)
  - Aphagia [Recovered/Resolved]
  - Weight decreased [Recovered/Resolved]
